FAERS Safety Report 9738732 (Version 1)
Quarter: 2013Q4

REPORT INFORMATION
  Report Type: Spontaneous
  Country: US (occurrence: US)
  Receive Date: 20131209
  Receipt Date: 20131209
  Transmission Date: 20140711
  Serious: No
  Sender: FDA-Public Use
  Company Number: US-009507513-1312USA002158

PATIENT
  Age: 68 Year
  Sex: Female

DRUGS (2)
  1. ASMANEX TWISTHALER [Suspect]
     Indication: ASTHMA
     Dosage: 220 MCG/ ONE INHALATION, ONCE DAILY
     Route: 055
  2. ASMANEX TWISTHALER [Suspect]
     Dosage: MULTIPLE DOSES (UNSPECIFIED NUMBER OF INHALATIONS)
     Route: 055
     Dates: start: 20131203

REACTIONS (5)
  - Asthma [Unknown]
  - Drug dose omission [Unknown]
  - Overdose [Unknown]
  - Expired drug administered [Unknown]
  - Product quality issue [Unknown]
